FAERS Safety Report 5731593-X (Version None)
Quarter: 2008Q2

REPORT INFORMATION
  Report Type: 
  Country: None (occurrence: None)
  Receive Date: 20080506
  Receipt Date: 20080506
  Transmission Date: 20081010
  Serious: Yes (Other)
  Sender: FDA-Public Use
  Company Number: None

PATIENT
  Age: 30 Year
  Sex: Female
  Weight: 48.9885 kg

DRUGS (2)
  1. YASMIN [Suspect]
     Indication: CONTRACEPTION
     Dosage: 1X DAY, PO
     Route: 048
     Dates: start: 20050301, end: 20080301
  2. YASMIN [Suspect]
     Indication: PREMENSTRUAL SYNDROME
     Dosage: 1X DAY, PO
     Route: 048
     Dates: start: 20050301, end: 20080301

REACTIONS (8)
  - ANXIETY [None]
  - DEPRESSION [None]
  - INSOMNIA [None]
  - MUSCLE SPASMS [None]
  - NIGHT SWEATS [None]
  - PALPITATIONS [None]
  - SINUS HEADACHE [None]
  - SUICIDAL IDEATION [None]
